FAERS Safety Report 7217206-9 (Version None)
Quarter: 2011Q1

REPORT INFORMATION
  Report Type: 
  Country: None (occurrence: None)
  Receive Date: 20110110
  Receipt Date: 20110103
  Transmission Date: 20110831
  Serious: Yes (Death, Hospitalization, Other)
  Sender: FDA-Public Use
  Company Number: US-SANOFI-AVENTIS-2010SA055033

PATIENT
  Age: 85 Year
  Sex: Male
  Weight: 65 kg

DRUGS (13)
  1. MULTAQ [Suspect]
     Indication: ATRIAL FIBRILLATION
     Route: 048
     Dates: start: 20100827, end: 20100830
  2. COUMADIN [Suspect]
     Route: 065
     Dates: start: 20100801, end: 20100801
  3. ACETYLSALICYLIC ACID SRT [Concomitant]
     Indication: ATRIAL FIBRILLATION
  4. ACETYLSALICYLIC ACID SRT [Concomitant]
     Indication: CORONARY ARTERY DISEASE
  5. VITAMIN D [Concomitant]
  6. LABETALOL [Concomitant]
  7. FISH OIL [Concomitant]
  8. CALCIFEROL [Concomitant]
  9. NEXIUM [Concomitant]
  10. HUMALOG [Concomitant]
  11. HUMULIN R [Concomitant]
     Indication: DIABETES MELLITUS
     Dosage: DOSE:5 UNIT(S)
  12. SYNTHROID [Concomitant]
     Indication: HYPOTHYROIDISM
  13. LANTUS [Concomitant]

REACTIONS (5)
  - HEPATOCELLULAR INJURY [None]
  - HYPOTENSION [None]
  - OFF LABEL USE [None]
  - SEPTIC SHOCK [None]
  - INTERNATIONAL NORMALISED RATIO INCREASED [None]
